FAERS Safety Report 8906661 (Version 2)
Quarter: 2012Q4

REPORT INFORMATION
  Report Type: Report from Study
  Country: US (occurrence: US)
  Receive Date: 20121114
  Receipt Date: 20121214
  Transmission Date: 20130627
  Serious: Yes (Life-Threatening, Hospitalization)
  Sender: FDA-Public Use
  Company Number: US-JNJFOC-20121104225

PATIENT
  Age: 60 Year
  Sex: Female
  Weight: 66.68 kg

DRUGS (4)
  1. USTEKINUMAB [Suspect]
     Indication: PSORIASIS
     Route: 058
     Dates: start: 201006, end: 20111104
  2. INFLIXIMAB [Concomitant]
  3. TACLONEX [Concomitant]
  4. CORTICOSTEROIDS [Concomitant]

REACTIONS (1)
  - Transitional cell carcinoma [Recovered/Resolved]
